FAERS Safety Report 5068626-2 (Version None)
Quarter: 2006Q3

REPORT INFORMATION
  Report Type: 
  Country: None (occurrence: None)
  Receive Date: 20060802
  Receipt Date: 20060112
  Transmission Date: 20061208
  Serious: No
  Sender: FDA-Public Use
  Company Number: US-BRISTOL-MYERS SQUIBB COMPANY-13245998

PATIENT
  Age: 73 Year
  Sex: Female
  Weight: 63 kg

DRUGS (6)
  1. COUMADIN [Suspect]
     Indication: ATRIAL FIBRILLATION
     Dosage: 7.5 MG 5 X A WEEK AND 5 MG 2 X PER WEEK
  2. ATENOLOL [Concomitant]
  3. FOLIC ACID [Concomitant]
  4. LIPITOR [Concomitant]
  5. ZETIA [Concomitant]
  6. METFORMIN HYDROCHLORIDE [Concomitant]
     Dosage: 2 750 MG TABLETS

REACTIONS (1)
  - INTERNATIONAL NORMALISED RATIO DECREASED [None]
